FAERS Safety Report 4289126-3 (Version None)
Quarter: 2004Q1

REPORT INFORMATION
  Report Type: 
  Country: None (occurrence: None)
  Receive Date: 20040210
  Receipt Date: 20031205
  Transmission Date: 20041129
  Serious: Yes (Other)
  Sender: FDA-Public Use
  Company Number: PHNU2003DE04320

PATIENT
  Age: 65 Year
  Sex: Male
  Weight: 82 kg

DRUGS (2)
  1. ZOMETA [Suspect]
     Indication: LYMPHOPLASMACYTOID LYMPHOMA/IMMUNOCYTOMA
     Dosage: 4 MG, QMO
     Dates: start: 20020501, end: 20030901
  2. SANDOCAL-D [Concomitant]
     Dosage: UNK, UNK
     Route: 048

REACTIONS (20)
  - BIOPSY BONE ABNORMAL [None]
  - BIOPSY BONE MARROW ABNORMAL [None]
  - BLOOD ALKALINE PHOSPHATASE INCREASED [None]
  - BLOOD CALCIUM DECREASED [None]
  - BLOOD PARATHYROID HORMONE [None]
  - BONE DISORDER [None]
  - BONE MARROW DISORDER [None]
  - BONE PAIN [None]
  - CALCINOSIS [None]
  - COMPUTERISED TOMOGRAM ABNORMAL [None]
  - HYPERPARATHYROIDISM SECONDARY [None]
  - HYPOCALCAEMIA [None]
  - MYALGIA [None]
  - NEUROPATHIC PAIN [None]
  - OSTEOSCLEROSIS [None]
  - POEMS SYNDROME [None]
  - SCINTIGRAPHY [None]
  - TENDON CALCIFICATION [None]
  - TENDON DISORDER [None]
  - X-RAY ABNORMAL [None]
